FAERS Safety Report 9235502 (Version 1)
Quarter: 2013Q1

REPORT INFORMATION
  Report Type: Spontaneous
  Country: US (occurrence: None)
  Receive Date: 20121031
  Receipt Date: 20121031
  Transmission Date: 20140127
  Serious: No
  Sender: FDA-Public Use
  Company Number: PHEH2012US011571

PATIENT
  Age: 36 Year
  Sex: Female
  Weight: 63.05 kg

DRUGS (5)
  1. GILENYA [Suspect]
     Route: 048
     Dates: start: 201201
  2. VITAMIN B12 (CYANOCOBALAMIN) [Concomitant]
  3. VITAMIN D3 (COLECALCIFEROL) [Concomitant]
  4. ALEVE (NAPROXEN SODIUM) [Concomitant]
  5. ADVIL (MEFENAMIC ACID) [Concomitant]

REACTIONS (4)
  - Palpitations [None]
  - Fatigue [None]
  - Headache [None]
  - Asthenia [None]
